FAERS Safety Report 6021334-3 (Version None)
Quarter: 2008Q4

REPORT INFORMATION
  Report Type: 
  Country: None (occurrence: None)
  Receive Date: 20081229
  Receipt Date: 20081222
  Transmission Date: 20090506
  Serious: Yes (Other)
  Sender: FDA-Public Use
  Company Number: A0756479A

PATIENT
  Age: 45 Year
  Sex: Female
  Weight: 63.6 kg

DRUGS (5)
  1. ADVAIR DISKUS 250/50 [Suspect]
     Indication: ASTHMA
     Dosage: 1PUFF PER DAY
     Route: 055
     Dates: start: 20070501
  2. ALLEGRA [Concomitant]
  3. GLUCOSAMINE [Concomitant]
  4. VITAMIN B-12 [Concomitant]
  5. VITAMIN B6 [Concomitant]

REACTIONS (6)
  - BLINDNESS [None]
  - MACULAR HOLE [None]
  - ORBITAL OEDEMA [None]
  - RETINOPATHY [None]
  - VISION BLURRED [None]
  - VISUAL IMPAIRMENT [None]
